FAERS Safety Report 15710384 (Version 1)
Quarter: 2018Q4

REPORT INFORMATION
  Report Type: Spontaneous
  Country: US (occurrence: US)
  Receive Date: 20181211
  Receipt Date: 20181211
  Transmission Date: 20190205
  Serious: No
  Sender: FDA-Public Use
  Company Number: US-LPDUSPRD-20181069

PATIENT

DRUGS (1)
  1. VENOFER [Suspect]
     Active Substance: IRON SUCROSE
     Dosage: UNKNOWN
     Route: 065

REACTIONS (1)
  - Extravasation [Unknown]
